FAERS Safety Report 17277235 (Version 1)
Quarter: 2020Q1

REPORT INFORMATION
  Report Type: Spontaneous
  Country: US (occurrence: US)
  Receive Date: 20191226
  Receipt Date: 20191226
  Transmission Date: 20200409
  Serious: Yes (Hospitalization)
  Sender: FDA-Public Use
  Company Number: None

PATIENT
  Age: 66 Year
  Sex: Male

DRUGS (18)
  1. PROBIOTIC [Concomitant]
     Active Substance: PROBIOTICS NOS
  2. HUMALOG KWK [Concomitant]
  3. DIPHENHYDRAM [Concomitant]
  4. COTELLIC [Suspect]
     Active Substance: COBIMETINIB
     Indication: MALIGNANT MELANOMA
     Route: 048
     Dates: start: 20190727
  5. GLIMEPIRIDE. [Concomitant]
     Active Substance: GLIMEPIRIDE
  6. FUROSEMIDE. [Concomitant]
     Active Substance: FUROSEMIDE
  7. MORPHINE SUL [Concomitant]
     Active Substance: MORPHINE SULFATE
  8. ATORVASTATIN [Concomitant]
     Active Substance: ATORVASTATIN
  9. METFORMIN [Concomitant]
     Active Substance: METFORMIN HYDROCHLORIDE
  10. ESCITALOPRAM [Concomitant]
     Active Substance: ESCITALOPRAM OXALATE
  11. LISINOPRIL. [Concomitant]
     Active Substance: LISINOPRIL
  12. LANTUS SOLOS [Concomitant]
  13. ASPIRIN. [Concomitant]
     Active Substance: ASPIRIN
  14. LEVETIRACETA [Concomitant]
  15. DILTIAZEM. [Concomitant]
     Active Substance: DILTIAZEM
  16. OLANZAPINE. [Concomitant]
     Active Substance: OLANZAPINE
  17. MULTIPLE VIT [Concomitant]
  18. MELATONIN [Concomitant]
     Active Substance: MELATONIN

REACTIONS (1)
  - Metastases to central nervous system [None]

NARRATIVE: CASE EVENT DATE: 20191125
